FAERS Safety Report 5764075-X (Version None)
Quarter: 2008Q2

REPORT INFORMATION
  Report Type: 
  Country: None (occurrence: None)
  Receive Date: 20080606
  Receipt Date: 20080606
  Transmission Date: 20081010
  Serious: Yes (Other)
  Sender: FDA-Public Use
  Company Number: None

PATIENT
  Age: 70 Year
  Sex: Male
  Weight: 106.5953 kg

DRUGS (1)
  1. COMBIGAN [Suspect]
     Indication: GLAUCOMA
     Dosage: 1 DROP 2 X DAY LEFT EYE
     Dates: start: 20080402, end: 20080508

REACTIONS (8)
  - ASTHENIA [None]
  - DEPRESSION [None]
  - ERYTHEMA OF EYELID [None]
  - EYE IRRITATION [None]
  - OCULAR HYPERAEMIA [None]
  - PHOTOPHOBIA [None]
  - SKIN EXFOLIATION [None]
  - VISION BLURRED [None]
